FAERS Safety Report 10165088 (Version 1)
Quarter: 2014Q2

REPORT INFORMATION
  Report Type: Spontaneous
  Country: US (occurrence: US)
  Receive Date: 20140510
  Receipt Date: 20140510
  Transmission Date: 20141212
  Serious: No
  Sender: FDA-Public Use
  Company Number: US-BRISTOL-MYERS SQUIBB COMPANY-19721349

PATIENT
  Age: 57 Year
  Sex: Female
  Weight: 97.05 kg

DRUGS (3)
  1. BYDUREON [Suspect]
     Indication: POLYCYSTIC OVARIES
     Route: 058
     Dates: start: 2013
  2. LUNESTA [Interacting]
     Indication: SLEEP DISORDER
     Route: 048
     Dates: start: 20131027
  3. GLUMETZA [Concomitant]
     Dosage: 1DF:1000 UNIT NOS
     Route: 048

REACTIONS (5)
  - Drug interaction [Recovered/Resolved]
  - Off label use [Unknown]
  - Impaired gastric emptying [Unknown]
  - Weight decreased [Unknown]
  - Diarrhoea [Recovering/Resolving]
